FAERS Safety Report 8558865-8 (Version None)
Quarter: 2012Q3

REPORT INFORMATION
  Report Type: 
  Country: None (occurrence: None)
  Receive Date: 20120801
  Receipt Date: 20120728
  Transmission Date: 20120928
  Serious: Yes (Hospitalization, Other)
  Sender: FDA-Public Use
  Company Number: PHHY2012MX066069

PATIENT
  Sex: Female

DRUGS (3)
  1. ZOLEDRONOC ACID [Suspect]
     Indication: OSTEOPOROSIS
     Dosage: 5 MG/100 ML, EACH YEAR
     Route: 042
     Dates: start: 20070607
  2. LOSARTAN POTASSIUM [Concomitant]
     Dosage: 1 DF, DAILY
     Dates: start: 20111205
  3. RANITIDINE [Concomitant]
     Dosage: 2 DF, DAILY

REACTIONS (3)
  - NERVE INJURY [None]
  - ABASIA [None]
  - ARTHRALGIA [None]
